FAERS Safety Report 12823626 (Version 3)
Quarter: 2017Q1

REPORT INFORMATION
  Report Type: Spontaneous
  Country: DZ (occurrence: DZ)
  Receive Date: 20161006
  Receipt Date: 20170227
  Transmission Date: 20170428
  Serious: No
  Sender: FDA-Public Use
  Company Number: DZ-INDIVIOR LIMITED-INDV-095332-2016

PATIENT
  Age: 48 Year
  Sex: Male

DRUGS (6)
  1. TEMGESIC [Suspect]
     Active Substance: BUPRENORPHINE HYDROCHLORIDE
     Indication: LUNG CANCER METASTATIC
     Dosage: 0.2 MG TWICE DAILY
     Route: 065
  2. TEMGESIC 0.3MG INJECTION [Suspect]
     Active Substance: BUPRENORPHINE HYDROCHLORIDE
     Indication: METASTASES TO CENTRAL NERVOUS SYSTEM
  3. TEMGESIC PATCH [Suspect]
     Active Substance: BUPRENORPHINE HYDROCHLORIDE
     Indication: LUNG CANCER METASTATIC
     Dosage: UNK
     Route: 062
  4. TEMGESIC 0.3MG INJECTION [Suspect]
     Active Substance: BUPRENORPHINE HYDROCHLORIDE
     Indication: LUNG CANCER METASTATIC
     Dosage: UNK
     Route: 058
  5. TEMGESIC [Suspect]
     Active Substance: BUPRENORPHINE HYDROCHLORIDE
     Indication: METASTASES TO CENTRAL NERVOUS SYSTEM
     Dosage: TEMGESIC PATCH
     Route: 062
  6. TEMGESIC PATCH [Suspect]
     Active Substance: BUPRENORPHINE HYDROCHLORIDE
     Indication: METASTASES TO CENTRAL NERVOUS SYSTEM

REACTIONS (4)
  - Anaemia [Unknown]
  - Dermatitis exfoliative [Unknown]
  - Dermatitis contact [Unknown]
  - Oral mucosa erosion [Unknown]
